FAERS Safety Report 7584553-0 (Version None)
Quarter: 2011Q2

REPORT INFORMATION
  Report Type: 
  Country: None (occurrence: None)
  Receive Date: 20110630
  Receipt Date: 20110622
  Transmission Date: 20111010
  Serious: Yes (Hospitalization, Other)
  Sender: FDA-Public Use
  Company Number: US-ACTELION-A-NJ2011-50792

PATIENT

DRUGS (5)
  1. WARFARIN SODIUM [Concomitant]
  2. BUMETANIDE [Concomitant]
  3. REVATIO [Concomitant]
  4. CALCIUM CHANNEL BLOCKERS [Concomitant]
  5. VENTAVIS [Suspect]
     Indication: PULMONARY ARTERIAL HYPERTENSION
     Dosage: UNK
     Route: 055
     Dates: start: 20100520

REACTIONS (7)
  - IMPAIRED HEALING [None]
  - THYROID CANCER [None]
  - PNEUMONIA [None]
  - FALL [None]
  - LIMB INJURY [None]
  - CONFUSIONAL STATE [None]
  - DECREASED APPETITE [None]
